FAERS Safety Report 22621632 (Version 7)
Quarter: 2023Q4

REPORT INFORMATION
  Report Type: Report from Study
  Country: CN (occurrence: CN)
  Receive Date: 20230620
  Receipt Date: 20231002
  Transmission Date: 20240110
  Serious: Yes (Life-Threatening, Hospitalization)
  Sender: FDA-Public Use
  Company Number: CN-JNJFOC-20230635276

PATIENT
  Age: 58 Year
  Sex: Female
  Weight: 45 kg

DRUGS (16)
  1. AMIVANTAMAB [Suspect]
     Active Substance: AMIVANTAMAB
     Indication: Non-small cell lung cancer
     Dosage: 25R VIAL
     Route: 058
     Dates: start: 20230601, end: 20230608
  2. AMIVANTAMAB [Suspect]
     Active Substance: AMIVANTAMAB
     Dosage: RESUME ADMINISTRATION ^1600MG^, C2D1 PLANED FOR 07-07-2023,SUSPENDED, POSTPONED TO 09-07-2023, ...OR
     Route: 058
  3. RIVAROXABAN [Concomitant]
     Active Substance: RIVAROXABAN
     Indication: Anticoagulant therapy
     Route: 048
     Dates: start: 20230601, end: 20230614
  4. CELECOXIB [Concomitant]
     Active Substance: CELECOXIB
     Indication: Pain
     Route: 048
     Dates: start: 20230603, end: 20230604
  5. TRAMADOL HYDROCHLORIDE [Concomitant]
     Active Substance: TRAMADOL HYDROCHLORIDE
     Indication: Pain
     Route: 048
     Dates: start: 20230605, end: 20230605
  6. TRAMADOL HYDROCHLORIDE [Concomitant]
     Active Substance: TRAMADOL HYDROCHLORIDE
     Indication: Pain
     Route: 048
     Dates: start: 20230606, end: 20230610
  7. FLUCONAZOLE [Concomitant]
     Active Substance: FLUCONAZOLE
     Indication: Antifungal prophylaxis
     Route: 048
     Dates: start: 20230702, end: 20230702
  8. FLUCONAZOLE [Concomitant]
     Active Substance: FLUCONAZOLE
     Route: 048
     Dates: start: 20230703, end: 20230710
  9. MOSAPRIDE CITRATE [Concomitant]
     Active Substance: MOSAPRIDE CITRATE
     Indication: Prophylaxis
     Route: 048
     Dates: start: 20230704, end: 20230711
  10. COMPOUND VITAMIN B [PYRIDOXINE HYDROCHLORIDE;RIBOFLAVIN;THIAMINE HYDRO [Concomitant]
     Indication: Stomatitis
     Route: 048
     Dates: start: 20230609, end: 20230613
  11. ESZOPICLONE [Concomitant]
     Active Substance: ESZOPICLONE
     Indication: Insomnia
     Route: 048
     Dates: start: 20230511, end: 20230511
  12. ESZOPICLONE [Concomitant]
     Active Substance: ESZOPICLONE
     Route: 048
     Dates: start: 20230614, end: 20230614
  13. ESZOPICLONE [Concomitant]
     Active Substance: ESZOPICLONE
     Route: 048
     Dates: start: 20230615, end: 20230615
  14. ESZOPICLONE [Concomitant]
     Active Substance: ESZOPICLONE
     Route: 048
     Dates: start: 20230616, end: 20230616
  15. ESZOPICLONE [Concomitant]
     Active Substance: ESZOPICLONE
     Route: 048
     Dates: start: 20230617, end: 20230617
  16. ESZOPICLONE [Concomitant]
     Active Substance: ESZOPICLONE
     Route: 048
     Dates: start: 20230618, end: 20230618

REACTIONS (3)
  - Oral infection [Recovering/Resolving]
  - Haemoptysis [Recovering/Resolving]
  - Hypokalaemia [Recovering/Resolving]

NARRATIVE: CASE EVENT DATE: 20230614
